FAERS Safety Report 14150213 (Version 1)
Quarter: 2017Q4

REPORT INFORMATION
  Report Type: Spontaneous
  Country: GB (occurrence: GB)
  Receive Date: 20171101
  Receipt Date: 20171101
  Transmission Date: 20180321
  Serious: Yes (Other)
  Sender: FDA-Public Use
  Company Number: GB-MYLANLABS-2017M1067908

PATIENT
  Age: 86 Year
  Sex: Female
  Weight: 65 kg

DRUGS (13)
  1. GLYCERYL TRINITRATE [Concomitant]
     Active Substance: NITROGLYCERIN
     Dates: start: 20160930
  2. INFLUENZA VIRUS [Concomitant]
     Active Substance: INFLUENZA VIRUS VACCINE
     Route: 030
     Dates: start: 20171011, end: 20171011
  3. CARMELLOSE [Concomitant]
     Dosage: USE AS DIRECTED.
     Dates: start: 20160930, end: 20170915
  4. SIMVASTATIN. [Concomitant]
     Active Substance: SIMVASTATIN
     Dosage: AT NIGHT.
     Dates: start: 20160930
  5. LEVOTHYROXINE. [Concomitant]
     Active Substance: LEVOTHYROXINE
     Dosage: EACH MORNING.
     Dates: start: 20160930
  6. PARACETAMOL [Concomitant]
     Active Substance: ACETAMINOPHEN
     Dosage: ONE OR TWO TO BE TAKEN FOUR TIMES A DAY.
     Dates: start: 20160930
  7. FUROSEMIDE. [Concomitant]
     Active Substance: FUROSEMIDE
     Dosage: AT LUNCHTIME.
     Dates: start: 20160930
  8. LACRI-LUBE [Concomitant]
     Dosage: AT NIGHT.
     Dates: start: 20160930, end: 20170915
  9. ASPIRIN. [Concomitant]
     Active Substance: ASPIRIN
     Dates: start: 20160802
  10. MIRTAZAPINE. [Suspect]
     Active Substance: MIRTAZAPINE
     Indication: PRODUCT USED FOR UNKNOWN INDICATION
     Dates: start: 20171011
  11. EPLERENONE. [Concomitant]
     Active Substance: EPLERENONE
     Dosage: EVERY MORNING.
     Dates: start: 20160930
  12. IBUPROFEN. [Concomitant]
     Active Substance: IBUPROFEN
     Dosage: 3-4 TIMES/DAY
     Dates: start: 20170915, end: 20170922
  13. LANSOPRAZOLE. [Concomitant]
     Active Substance: LANSOPRAZOLE
     Dates: start: 20160930

REACTIONS (1)
  - Nightmare [Recovered/Resolved]

NARRATIVE: CASE EVENT DATE: 20171011
